FAERS Safety Report 12924288 (Version 2)
Quarter: 2016Q4

REPORT INFORMATION
  Report Type: Spontaneous
  Country: GR (occurrence: GR)
  Receive Date: 20161108
  Receipt Date: 20161209
  Transmission Date: 20170207
  Serious: Yes (Death, Hospitalization)
  Sender: FDA-Public Use
  Company Number: GR-CELGENEUS-GRC-2016102791

PATIENT
  Age: 85 Year
  Sex: Male

DRUGS (7)
  1. NOVORAPID [Concomitant]
     Active Substance: INSULIN ASPART
     Indication: DIABETES MELLITUS
     Route: 058
  2. PLATELETS [Concomitant]
     Active Substance: HUMAN PLATELET, ALLOGENIC
     Indication: PRODUCT USED FOR UNKNOWN INDICATION
     Route: 065
     Dates: end: 20161017
  3. FELOTENS [Concomitant]
     Indication: HYPERTENSION
     Route: 048
  4. BORTEZOMIB [Suspect]
     Active Substance: BORTEZOMIB
     Indication: PRODUCT USED FOR UNKNOWN INDICATION
     Route: 065
     Dates: end: 20161010
  5. REVLIMID [Suspect]
     Active Substance: LENALIDOMIDE
     Indication: PLASMA CELL MYELOMA
     Dosage: 10 MG
     Route: 048
     Dates: start: 20160924, end: 20161002
  6. SINTROM [Concomitant]
     Active Substance: ACENOCOUMAROL
     Indication: AORTIC VALVE REPLACEMENT
     Route: 048
     Dates: start: 2007
  7. SOLURIC [Concomitant]
     Active Substance: ALLOPURINOL
     Indication: HYPERURICAEMIA
     Route: 048

REACTIONS (3)
  - Thrombocytopenia [Unknown]
  - Acute kidney injury [Fatal]
  - Neutropenia [Fatal]

NARRATIVE: CASE EVENT DATE: 20161007
